FAERS Safety Report 6152966-X (Version None)
Quarter: 2009Q2

REPORT INFORMATION
  Report Type: 
  Country: None (occurrence: None)
  Receive Date: 20090409
  Receipt Date: 20090326
  Transmission Date: 20091009
  Serious: Yes (Hospitalization)
  Sender: FDA-Public Use
  Company Number: KR-JNJFOC-20090306956

PATIENT
  Age: 52 Year
  Sex: Female
  Weight: 55.8 kg

DRUGS (13)
  1. DECITABINE (DECITABINE) LYOPHILIZED [Suspect]
     Indication: MYELODYSPLASTIC SYNDROME
     Dosage: 20 MG/M2, 1 IN 1 DAY; INTRAVENOUS
     Route: 042
     Dates: start: 20090305, end: 20090309
  2. LEVOFLOXACIN [Suspect]
     Indication: BACTERIAL INFECTION
     Dosage: 500 MG, 1 IN 1 DAY, ORAL
     Route: 048
     Dates: start: 20090305, end: 20090324
  3. LEVOFLOXACIN [Suspect]
     Indication: BACTERIAL INFECTION
     Dosage: 500 MG, 1 IN 1 DAY, ORAL
     Route: 048
     Dates: start: 20090330
  4. FLUCONAZOLE [Suspect]
     Indication: ANTIFUNGAL PROPHYLAXIS
     Dosage: 50 MG, 2 IN 1 DAY, ORAL
     Route: 048
     Dates: start: 20090305
  5. LACTULOSE [Suspect]
     Indication: CONSTIPATION
     Dosage: 15 ML, 3 IN 1 DAY, ORAL, 30 ML, 1 IN 1 DAY, ORAL
     Route: 048
     Dates: start: 20090305, end: 20090321
  6. LACTULOSE [Suspect]
     Indication: CONSTIPATION
     Dosage: 15 ML, 3 IN 1 DAY, ORAL, 30 ML, 1 IN 1 DAY, ORAL
     Route: 048
     Dates: start: 20090322
  7. FOLIC ACID [Suspect]
     Indication: ANAEMIA
     Dosage: 2 IN 1 WEEK, ORAL
     Route: 048
     Dates: start: 20090306
  8. LEVOSULPIRIDE (LEVOSULPIRIDE) UNSPECIFIED [Suspect]
     Indication: DYSPEPSIA
     Dosage: 3 IN 1 DAY, ORAL
     Route: 048
     Dates: start: 20090303
  9. MAGNESIUM OXIDE (MAGNESIUM OXIDE) UNSPECIFIED [Suspect]
     Indication: ANTACID THERAPY
     Dosage: 3 IN 1 DAY, ORAL
     Route: 048
     Dates: start: 20090303
  10. BACTRIM [Suspect]
     Indication: ANTIBIOTIC THERAPY
     Dosage: 2 IN1 WEEK, ORAL
     Route: 048
     Dates: start: 20090306
  11. CALCIUM POLYCARBOPHIL (CALCIUM) UNSPECIFIED [Suspect]
     Indication: CONSTIPATION
     Dosage: 3 IN 1 DAY, ORAL
     Route: 048
     Dates: start: 20090322
  12. LEVOFLOXACIN [Concomitant]
  13. CALCIUM POLYCARBOPHIL (CALCIUM) [Concomitant]

REACTIONS (2)
  - FEBRILE NEUTROPENIA [None]
  - HERPES SIMPLEX [None]
